FAERS Safety Report 16966602 (Version 2)
Quarter: 2019Q4

REPORT INFORMATION
  Report Type: Report from Study
  Country: CO (occurrence: CO)
  Receive Date: 20191028
  Receipt Date: 20191029
  Transmission Date: 20200122
  Serious: Yes (Hospitalization)
  Sender: FDA-Public Use
  Company Number: CO-ACTELION-A-CH2019-197408

PATIENT
  Age: 58 Year
  Sex: Female
  Weight: 46 kg

DRUGS (1)
  1. OPSUMIT [Suspect]
     Active Substance: MACITENTAN
     Indication: PULMONARY ARTERIAL HYPERTENSION
     Dosage: 10 MG, QD
     Route: 048
     Dates: start: 20181212

REACTIONS (4)
  - Skin ulcer [Not Recovered/Not Resolved]
  - Scar [Not Recovered/Not Resolved]
  - Necrosis [Not Recovered/Not Resolved]
  - Finger amputation [Not Recovered/Not Resolved]

NARRATIVE: CASE EVENT DATE: 201906
